FAERS Safety Report 9325904 (Version 2)
Quarter: 2013Q2

REPORT INFORMATION
  Report Type: Spontaneous
  Country: US (occurrence: US)
  Receive Date: 20130604
  Receipt Date: 20130620
  Transmission Date: 20140414
  Serious: Yes (Other)
  Sender: FDA-Public Use
  Company Number: US-COVIDIEN/TYCO HEALTHCARE/MALLINCKRODT-T201302438

PATIENT
  Sex: Male

DRUGS (2)
  1. GABLOFEN [Suspect]
     Indication: MUSCLE SPASTICITY
     Dosage: 600 MG; 2000 MG/ML
     Route: 037
  2. BACLOFEN [Concomitant]
     Dosage: UNK
     Route: 048

REACTIONS (4)
  - Intestinal obstruction [Recovered/Resolved]
  - Dementia [Unknown]
  - Immobile [Unknown]
  - Muscle spasticity [Recovering/Resolving]
